FAERS Safety Report 24316467 (Version 2)
Quarter: 2024Q3

REPORT INFORMATION
  Report Type: Spontaneous
  Country: TR (occurrence: TR)
  Receive Date: 20240913
  Receipt Date: 20240923
  Transmission Date: 20241016
  Serious: Yes (Other)
  Sender: ACCORD
  Company Number: TR-Accord-445260

PATIENT
  Age: 5 Year
  Sex: Male

DRUGS (2)
  1. OSELTAMIVIR [Suspect]
     Active Substance: OSELTAMIVIR
     Indication: Upper respiratory tract infection
     Dosage: APPROXIMATELY 20 DAYS AGO, THE PATIENT WAS INITIATED ON OSELTAMIVIR
  2. CEFTRIAXONE [Suspect]
     Active Substance: CEFTRIAXONE\CEFTRIAXONE SODIUM
     Indication: Upper respiratory tract infection

REACTIONS (1)
  - Acute generalised exanthematous pustulosis [Recovered/Resolved]
